FAERS Safety Report 8301323-6 (Version None)
Quarter: 2012Q2

REPORT INFORMATION
  Report Type: 
  Country: None (occurrence: None)
  Receive Date: 20120420
  Receipt Date: 20120416
  Transmission Date: 20120825
  Serious: Yes (Hospitalization)
  Sender: FDA-Public Use
  Company Number: FR-SANOFI-AVENTIS-2012SA026120

PATIENT
  Age: 49 Year
  Sex: Female

DRUGS (2)
  1. BYETTA [Suspect]
     Route: 048
  2. AMARYL [Suspect]
     Route: 048

REACTIONS (1)
  - PEMPHIGOID [None]
